FAERS Safety Report 9995861 (Version 1)
Quarter: 2014Q1

REPORT INFORMATION
  Report Type: Spontaneous
  Country: US (occurrence: None)
  Receive Date: 20140218
  Receipt Date: 20140218
  Transmission Date: 20141002
  Serious: Yes (Other)
  Sender: FDA-Public Use
  Company Number: 1000052647

PATIENT
  Age: 42 Year
  Sex: Female

DRUGS (5)
  1. VIIBRYD [Suspect]
     Indication: BIPOLAR I DISORDER
     Dosage: 10 MG (10 MG, 1 IN 1 D), ORAL
     Route: 048
     Dates: start: 2013, end: 2013
  2. VIIBRYD (VILAZODONE HYDROCHLORIDE) (40 MILLIGRAM, TABLETS) [Suspect]
     Indication: BIPOLAR I DISORDER
     Dosage: 40 MG (40 MG, 1IN 1 D), ORAL
     Route: 048
     Dates: start: 2013, end: 20131231
  3. KLONOPIN (CLONAZEPAM) (CLONAZEPAM) [Concomitant]
  4. LAMICTAL (LAMOTRIGINE) (LAMOTRIGINE) [Concomitant]
  5. GABAPENTIN (GABAPENTIN) (GABAPENTIN) [Concomitant]

REACTIONS (8)
  - Diarrhoea [None]
  - Libido decreased [None]
  - Weight increased [None]
  - Anxiety [None]
  - Anger [None]
  - Agitation [None]
  - Feeling abnormal [None]
  - Off label use [None]
